FAERS Safety Report 17459128 (Version 4)
Quarter: 2020Q4

REPORT INFORMATION
  Report Type: Spontaneous
  Country: JP (occurrence: JP)
  Receive Date: 20200226
  Receipt Date: 20201119
  Transmission Date: 20210113
  Serious: Yes (Death, Other)
  Sender: FDA-Public Use
  Company Number: JP-JAZZ-2019-JP-018034

PATIENT
  Age: 69 Year
  Sex: Female
  Weight: 45.7 kg

DRUGS (1)
  1. DEFITELIO [Suspect]
     Active Substance: DEFIBROTIDE SODIUM
     Indication: VENOOCCLUSIVE LIVER DISEASE
     Dosage: 25 MG/KG/DAY
     Route: 042
     Dates: start: 20191206, end: 20191223

REACTIONS (4)
  - Disease progression [Fatal]
  - Headache [Unknown]
  - Systemic mycosis [Fatal]
  - Hypertension [Unknown]

NARRATIVE: CASE EVENT DATE: 20200116
